FAERS Safety Report 15967913 (Version 14)
Quarter: 2022Q2

REPORT INFORMATION
  Report Type: Report from Study
  Country: CA (occurrence: CA)
  Receive Date: 20190215
  Receipt Date: 20220609
  Transmission Date: 20220721
  Serious: Yes (Death, Hospitalization, Disabling, Other)
  Sender: FDA-Public Use
  Company Number: PHHY2019CA025339

PATIENT
  Age: 75 Year
  Sex: Male

DRUGS (71)
  1. XOLAIR [Suspect]
     Active Substance: OMALIZUMAB
     Indication: Asthma
     Dosage: 300 MG, BIW
     Route: 058
     Dates: start: 20190116
  2. XOLAIR [Suspect]
     Active Substance: OMALIZUMAB
     Dosage: 300 MG, BIW
     Route: 058
     Dates: start: 20190116
  3. XOLAIR [Suspect]
     Active Substance: OMALIZUMAB
     Dosage: 300 MG, BIW
     Route: 058
     Dates: start: 20190130
  4. XOLAIR [Suspect]
     Active Substance: OMALIZUMAB
     Dosage: 300 MG, BIW
     Route: 058
     Dates: start: 20190227
  5. XOLAIR [Suspect]
     Active Substance: OMALIZUMAB
     Dosage: 300 MG, BIW
     Route: 058
     Dates: start: 201903
  6. XOLAIR [Suspect]
     Active Substance: OMALIZUMAB
     Dosage: 300 MG, BIW
     Route: 058
     Dates: start: 20190313
  7. XOLAIR [Suspect]
     Active Substance: OMALIZUMAB
     Dosage: UNK
     Route: 058
     Dates: start: 20190325
  8. XOLAIR [Suspect]
     Active Substance: OMALIZUMAB
     Dosage: 300 MG, BIW
     Route: 058
     Dates: start: 20190703
  9. XOLAIR [Suspect]
     Active Substance: OMALIZUMAB
     Dosage: 300 MG, BIW
     Route: 058
     Dates: start: 20190717
  10. XOLAIR [Suspect]
     Active Substance: OMALIZUMAB
     Dosage: 300 MG, BIW
     Route: 058
     Dates: start: 20190814
  11. XOLAIR [Suspect]
     Active Substance: OMALIZUMAB
     Dosage: 300 MG, BIW
     Route: 058
     Dates: start: 20190828
  12. XOLAIR [Suspect]
     Active Substance: OMALIZUMAB
     Dosage: 300 MG, BIW
     Route: 058
     Dates: start: 20191106
  13. XOLAIR [Suspect]
     Active Substance: OMALIZUMAB
     Dosage: 300 MG, BIW
     Route: 058
  14. XOLAIR [Suspect]
     Active Substance: OMALIZUMAB
     Dosage: 300 MG, BIW
     Route: 058
  15. XOLAIR [Suspect]
     Active Substance: OMALIZUMAB
     Dosage: 300 MG, BIW
     Route: 058
  16. XOLAIR [Suspect]
     Active Substance: OMALIZUMAB
     Dosage: UNK
     Route: 058
     Dates: start: 20210324
  17. XOLAIR [Suspect]
     Active Substance: OMALIZUMAB
     Dosage: UNK
     Route: 058
     Dates: start: 20210407
  18. XOLAIR [Suspect]
     Active Substance: OMALIZUMAB
     Dosage: UNK
     Route: 065
     Dates: start: 20210616
  19. XOLAIR [Suspect]
     Active Substance: OMALIZUMAB
     Dosage: UNK
     Route: 058
     Dates: start: 20210630
  20. XOLAIR [Suspect]
     Active Substance: OMALIZUMAB
     Dosage: UNK
     Route: 065
     Dates: start: 20210714
  21. XOLAIR [Suspect]
     Active Substance: OMALIZUMAB
     Dosage: 300 MG
     Route: 058
  22. XOLAIR [Suspect]
     Active Substance: OMALIZUMAB
     Dosage: 300 MG, BIW
     Route: 058
     Dates: start: 20210908
  23. XOLAIR [Suspect]
     Active Substance: OMALIZUMAB
     Dosage: 300 MG, BIW
     Route: 058
  24. XOLAIR [Suspect]
     Active Substance: OMALIZUMAB
     Dosage: 300 MG, BIW
     Route: 058
  25. XOLAIR [Suspect]
     Active Substance: OMALIZUMAB
     Dosage: 300 MG, BIW
     Route: 058
  26. XOLAIR [Suspect]
     Active Substance: OMALIZUMAB
     Dosage: 300 MG, BIW
     Route: 058
  27. XOLAIR [Suspect]
     Active Substance: OMALIZUMAB
     Dosage: 3000 MG, BIW
     Route: 058
     Dates: start: 20211026
  28. XOLAIR [Suspect]
     Active Substance: OMALIZUMAB
     Dosage: 300 MG, BIW
     Route: 058
     Dates: start: 20211215
  29. XOLAIR [Suspect]
     Active Substance: OMALIZUMAB
     Dosage: 300 MG, BIW
     Route: 058
     Dates: start: 20220414
  30. METOPROLOL [Suspect]
     Active Substance: METOPROLOL
     Indication: Product used for unknown indication
     Dosage: UNK
     Route: 065
  31. MEROPENEM [Suspect]
     Active Substance: MEROPENEM
     Indication: Product used for unknown indication
     Dosage: 1 DOSAGE FORM, Q8H, (1 G (100 ML), (VIA INTERNAL IN 30 MINUTES 3X/DAY EVERY 8 HOURS))
     Route: 042
  32. ATORVASTATIN [Concomitant]
     Active Substance: ATORVASTATIN
     Indication: Cardiac disorder
     Dosage: 1 DOSAGE FORM, QD
     Route: 048
  33. PLAVIX [Concomitant]
     Active Substance: CLOPIDOGREL BISULFATE
     Indication: Cardiac disorder
     Dosage: 1 DOSAGE FORM, QD
     Route: 048
  34. DILTIAZEM [Concomitant]
     Active Substance: DILTIAZEM
     Indication: Cardiac disorder
     Dosage: 1 DOSAGE FORM, QD
     Route: 048
  35. PANTOPRAZOLE SODIUM [Concomitant]
     Active Substance: PANTOPRAZOLE SODIUM
     Indication: Gastrooesophageal reflux disease
     Dosage: 1 DOSAGE FORM, QD
     Route: 048
  36. RIVA EZETIMIBE [Concomitant]
     Indication: Cardiac disorder
     Dosage: 1 DOSAGE FORM, QD
     Route: 048
  37. LASIX [Concomitant]
     Active Substance: FUROSEMIDE
     Indication: Cardiac disorder
     Dosage: 40 MG, QD
     Route: 048
  38. LASIX [Concomitant]
     Active Substance: FUROSEMIDE
     Indication: Swelling
     Dosage: 20 MG, WITH DINNER
     Route: 065
  39. LASIX [Concomitant]
     Active Substance: FUROSEMIDE
     Dosage: 40 MG, BID
     Route: 048
     Dates: start: 202201
  40. LASIX [Concomitant]
     Active Substance: FUROSEMIDE
     Dosage: 20 MG, QD
     Route: 065
     Dates: start: 202201
  41. BREO ELLIPTA [Concomitant]
     Active Substance: FLUTICASONE FUROATE\VILANTEROL TRIFENATATE
     Indication: Product used for unknown indication
     Dosage: UNK (200/25 MCG), QD
     Route: 065
  42. SPIRIVA [Concomitant]
     Active Substance: TIOTROPIUM BROMIDE MONOHYDRATE
     Indication: Product used for unknown indication
     Dosage: 2 DOSAGE FORM
     Route: 055
  43. CORTISONE [Concomitant]
     Active Substance: CORTISONE
     Indication: Product used for unknown indication
     Dosage: 1 DOSAGE FORM, QD
  44. POTASSIUM [Concomitant]
     Active Substance: POTASSIUM
     Indication: Product used for unknown indication
     Dosage: 1 DOSAGE FORM, QD
     Route: 065
     Dates: start: 202201
  45. AURO CEPHALEXIN [Concomitant]
     Indication: Infection
     Dosage: 500 MG, QID
     Route: 065
     Dates: start: 20220210
  46. NAPROXEN [Concomitant]
     Active Substance: NAPROXEN
     Indication: Pain
     Dosage: 500 MG, BID, (TAKE 1 TABLET 2X/DAY AT LUNCH AND DINNER FOR 14 DAYS)
     Route: 065
     Dates: start: 20220209
  47. NAPROXEN [Concomitant]
     Active Substance: NAPROXEN
     Indication: Inflammation
  48. METOPROLOL TARTRATE [Concomitant]
     Active Substance: METOPROLOL TARTRATE
     Indication: Blood pressure abnormal
     Dosage: 100 MG, BID, (AT LUNCH AND DINNER REGULARLY)
     Route: 065
     Dates: start: 20220209
  49. METOPROLOL TARTRATE [Concomitant]
     Active Substance: METOPROLOL TARTRATE
     Indication: Cardiac disorder
  50. ELIQUIS [Concomitant]
     Active Substance: APIXABAN
     Indication: Coagulopathy
     Dosage: 5 MG, BID, (2X/DAY AT LUNCH AND DINNER)
     Route: 065
     Dates: start: 20220209
  51. FUROSEMIDE [Concomitant]
     Active Substance: FUROSEMIDE
     Indication: Product used for unknown indication
     Dosage: 40 MG, (TAKE 1 TABLET WITH LUNCH AND 0.5 TABLET AT NOON (EQUIVALENT TO LASIX))
     Route: 065
     Dates: start: 20210902
  52. FUROSEMIDE [Concomitant]
     Active Substance: FUROSEMIDE
     Dosage: 40 MG, BID, (2X/DAY AT LUNCH AND MIDDAY)
     Route: 065
     Dates: start: 20220209
  53. FUROSEMIDE [Concomitant]
     Active Substance: FUROSEMIDE
     Dosage: 40 MG, BID, (2X/DAY AT LUNCH AND MIDDAY)
     Route: 065
     Dates: start: 20220209
  54. SODIUM CHLORIDE [Concomitant]
     Active Substance: SODIUM CHLORIDE
     Indication: Product used for unknown indication
     Dosage: 1 DOSAGE FORM, (RINSE WITH 10ML OF NACLAVANT AND AFTER THE ANTIBIOTIC)
     Route: 065
     Dates: start: 20220111
  55. SODIUM CHLORIDE [Concomitant]
     Active Substance: SODIUM CHLORIDE
     Dosage: 1 DOSAGE FORM, (RINSE WITH 10ML OF NACLAVANT AND AFTER THE ANTIBIOTIC)
     Route: 065
     Dates: start: 20220106
  56. CORTEF [Concomitant]
     Active Substance: HYDROCORTISONE
     Indication: Product used for unknown indication
     Dosage: 10 MG, (DISPENSE: TAKE 1.5 TABLET IN THE MORNING AT 8:00, 1 TABLET AT NOON. IN CASE OF ACUTE DISEASE
     Route: 065
     Dates: start: 20220111
  57. PREDNISONE [Concomitant]
     Active Substance: PREDNISONE
     Indication: Product used for unknown indication
     Dosage: 5 MG, (STEP 1: TAKE 5 TABLETS 1X/DAY WITH LUNCH FOR 4 DAYS; STEP 2: TAKE 3 TABLETS 1X/DAY WITH LUNCH
     Route: 065
     Dates: start: 20220106
  58. PMS-NYSTATIN [Concomitant]
     Indication: Product used for unknown indication
     Dosage: 1 DOSAGE FORM, (100 U/ML), QID, TAKE 5 ML IN MOUTHWASH 4X/DAY, THEN SWALLOW. TAKE FOR 7 DAYS
     Route: 065
     Dates: start: 20220106
  59. LUMIGAN [Concomitant]
     Active Substance: BIMATOPROST
     Indication: Glaucoma
     Dosage: 1 DOSAGE FORM, QD (PUT 1 DROP IN THE 2 EYES 1X/DAY IN THE EVENING REGULARLY)
     Route: 065
     Dates: start: 20211116
  60. DILTIAZEM HYDROCHLORIDE [Concomitant]
     Active Substance: DILTIAZEM HYDROCHLORIDE
     Indication: Blood pressure abnormal
     Dosage: 180 MG, BID, (TAKE 2 CAPSULES/DAY AT BEDTIME-REGULARLY (EQUIVALENT TO CARDIZEM))
     Route: 065
     Dates: start: 20211114
  61. EPIPEN [Concomitant]
     Active Substance: EPINEPHRINE
     Indication: Product used for unknown indication
     Dosage: 0.3 MG, (IN THE SIDE OF THE THIGH IF NEEDED IN CASE OF SEVER ALLERGY THEN GO TO THE EMERGENCY DEPART
     Route: 030
     Dates: start: 20211110
  62. MOMETASONE FUROATE [Concomitant]
     Active Substance: MOMETASONE FUROATE
     Indication: Eczema
     Dosage: 1 DOSAGE FORM, QD, (APPLY A THIN LAYER 1X/DAY ON ECZEMA LESIONS 1X/DAY)
     Route: 065
     Dates: start: 20210928
  63. ZENHALE [Concomitant]
     Active Substance: FORMOTEROL FUMARATE\MOMETASONE FUROATE
     Indication: Product used for unknown indication
     Dosage: 1 DOSAGE FORM (5+200 MCG), BID, (TAKE 2 INHALATIONS 2X/DAY REGULARLY AND INCREASE TO 2 INHALATIONS 4
     Route: 065
     Dates: start: 20210715
  64. ALVESCO [Concomitant]
     Active Substance: CICLESONIDE
     Indication: Product used for unknown indication
     Dosage: 1 DOSAGE FORM, (200 MCG), BID, (TAKE 1 INHALATION BY MOUTH 2X/DAY IN THE MORNING AND EVENING. RINSE
     Route: 065
     Dates: start: 20210615
  65. PMS MONTELUKAST [Concomitant]
     Indication: Product used for unknown indication
     Dosage: 10 MG, QD, (DISPENSE 1 TABLET 1X/DAY AT BEDTIME-REGULARLY (EQUIVALENT TO SINGULAIR))
     Route: 065
     Dates: start: 20210615
  66. JAMP CLOPIDOGREL [Concomitant]
     Indication: Blood disorder
     Dosage: 75 MG, QD, (DISPENSE 1 TABLET/DAY WITH LUNCH-REGULARLY (EQUIVALENT TO PLAVIX))
     Route: 065
     Dates: start: 20210524
  67. CYANOCOBALAMIN [Concomitant]
     Active Substance: CYANOCOBALAMIN
     Indication: Product used for unknown indication
     Dosage: 1 DOSAGE FORM, QD, (DISPENSE 1 TABLET 1X/DAY IN THE MORNING AT BREAKFAST REGULARLY)
     Route: 065
     Dates: start: 20210524
  68. METOPROLOL [Concomitant]
     Active Substance: METOPROLOL
     Indication: Atrial fibrillation
     Dosage: 100 MG, BID
     Route: 065
     Dates: start: 20220209
  69. TOBRAMYCIN [Concomitant]
     Active Substance: TOBRAMYCIN
     Indication: Product used for unknown indication
     Dosage: UNK UNK, BID
     Route: 055
     Dates: start: 20220427
  70. ALBUTEROL [Concomitant]
     Active Substance: ALBUTEROL
     Indication: Product used for unknown indication
     Dosage: UNK, BID
     Route: 065
     Dates: start: 20220427
  71. ELIQUIS [Concomitant]
     Active Substance: APIXABAN
     Indication: Atrial fibrillation
     Dosage: 5 MG, BID
     Route: 065
     Dates: start: 20220209

REACTIONS (28)
  - Death [Fatal]
  - Pneumonia [Not Recovered/Not Resolved]
  - Dyspnoea [Not Recovered/Not Resolved]
  - Blood pressure systolic increased [Not Recovered/Not Resolved]
  - Bronchiolitis [Unknown]
  - Respiratory tract infection [Unknown]
  - Renal impairment [Unknown]
  - Cellulitis [Unknown]
  - Device related infection [Unknown]
  - Cough [Not Recovered/Not Resolved]
  - Bronchitis [Recovered/Resolved]
  - Decreased appetite [Not Recovered/Not Resolved]
  - Asthenia [Unknown]
  - Drug hypersensitivity [Unknown]
  - Catheter site bruise [Unknown]
  - Weight decreased [Unknown]
  - Respiratory rate increased [Unknown]
  - Gait disturbance [Unknown]
  - Bronchial disorder [Unknown]
  - Herpes zoster [Unknown]
  - Respiratory disorder [Not Recovered/Not Resolved]
  - Asthma [Unknown]
  - Secretion discharge [Unknown]
  - Fatigue [Unknown]
  - Asbestosis [Unknown]
  - Fungal infection [Unknown]
  - Therapeutic response decreased [Unknown]
  - Drug ineffective [Unknown]

NARRATIVE: CASE EVENT DATE: 20190130
